FAERS Safety Report 5704543-X (Version None)
Quarter: 2008Q2

REPORT INFORMATION
  Report Type: 
  Country: None (occurrence: None)
  Receive Date: 20080414
  Receipt Date: 20080403
  Transmission Date: 20081010
  Serious: Yes (Death, Hospitalization)
  Sender: FDA-Public Use
  Company Number: DE-ROCHE-526131

PATIENT
  Sex: Female
  Weight: 77.5 kg

DRUGS (18)
  1. CAPECITABINE [Suspect]
     Dosage: FREQUENCY REPORTED AS D1-D14 C1
     Route: 048
     Dates: start: 20061212
  2. CISPLATIN [Suspect]
     Dosage: FREQUENCY: D1 C1
     Route: 042
     Dates: start: 20061212
  3. EUTHYROX [Concomitant]
     Dosage: REPORTED AS EUTHYROX 100, 1-0-0
  4. BELOC [Concomitant]
     Dosage: REPORTED AS: BELOC 20, 1-0-0
  5. CARMEN [Concomitant]
     Dosage: REPORTED AS CARMEN 10, 0-0-1.
  6. ZOCOR [Concomitant]
     Dosage: REPORTED AS ZOCOR 20, 0-0-1
  7. DELIX 5 [Concomitant]
     Dosage: REPORTED AS DELIX 5, 1-0-0.
  8. NOVALGIN [Concomitant]
     Dosage: REPORTED AS NOVALGIN GTT, 4X30.
  9. REMERGIL [Concomitant]
     Dosage: REPORTED AS REMERGIL 15 MG, 0-0-0-1
  10. VERGENTAN [Concomitant]
     Dosage: TDD REPORTED AS B.BED.
  11. SIMVASTIN [Concomitant]
     Dosage: REPORTED AS 20, 0-0-1
  12. MCP [Concomitant]
     Dosage: REPORTED AS MCP GTT. TDD REPORTED AS 4 X 30.
  13. KALINOR BRAUSE [Concomitant]
     Dosage: TDD REPORTED AS 1-0-1.
  14. KALINOR BRAUSE [Concomitant]
     Dosage: TDD REPORTED AS 1-0-1.
  15. KALINOR BRAUSE [Concomitant]
     Dosage: TDD REPORTED AS 1-0-1.
  16. LOPERAMID [Concomitant]
     Dosage: TDD REPORTED AS 1-1-1-1.
  17. 1 CONCOMITANT DRUG [Concomitant]
     Dosage: DRUG NAME REPORTED AS ZOP. TDD REPORTED AS 1X1.
  18. PALLADON [Concomitant]
     Dosage: TDD REPORTED AS 1-0-0.

REACTIONS (2)
  - DIARRHOEA [None]
  - LEUKOPENIA [None]
